FAERS Safety Report 9821694 (Version 4)
Quarter: 2014Q2

REPORT INFORMATION
  Report Type: Spontaneous
  Country: US (occurrence: US)
  Receive Date: 20140116
  Receipt Date: 20140625
  Transmission Date: 20141212
  Serious: Yes (Other)
  Sender: FDA-Public Use
  Company Number: US-PFIZER INC-2014014473

PATIENT
  Age: 42 Year
  Sex: Female
  Weight: 51.7 kg

DRUGS (2)
  1. LYRICA [Suspect]
     Indication: FIBROMYALGIA
     Dosage: 150 MG, THREE TIMES DAILY
     Route: 048
     Dates: start: 2013, end: 2013
  2. DIAZEPAM [Concomitant]
     Dosage: UNK

REACTIONS (3)
  - Hypokinesia [Recovered/Resolved]
  - Pain [Unknown]
  - Fibromyalgia [Unknown]
